FAERS Safety Report 4469801-8 (Version None)
Quarter: 2004Q4

REPORT INFORMATION
  Report Type: 
  Country: None (occurrence: None)
  Receive Date: 20041008
  Receipt Date: 20040914
  Transmission Date: 20050328
  Serious: Yes (Other)
  Sender: FDA-Public Use
  Company Number: US-GLAXOSMITHKLINE-A0526126A

PATIENT
  Age: 36 Year
  Sex: Female

DRUGS (2)
  1. COMBIVIR [Suspect]
     Indication: HIV INFECTION
     Dosage: 2TABS PER DAY
     Route: 048
     Dates: start: 20040819
  2. VIRACEPT [Suspect]
     Indication: HIV INFECTION
     Dosage: 2500MG PER DAY
     Route: 048
     Dates: start: 20040819

REACTIONS (3)
  - ABORTION SPONTANEOUS [None]
  - CERVICAL INCOMPETENCE [None]
  - VAGINAL HAEMORRHAGE [None]
